FAERS Safety Report 13030915 (Version 1)
Quarter: 2016Q4

REPORT INFORMATION
  Report Type: Spontaneous
  Country: US (occurrence: US)
  Receive Date: 20161215
  Receipt Date: 20161215
  Transmission Date: 20170207
  Serious: Yes (Hospitalization)
  Sender: FDA-Public Use
  Company Number: US-NOVOPROD-475519

PATIENT
  Age: 44 Year
  Sex: Female
  Weight: 74.83 kg

DRUGS (1)
  1. NOVOLIN 70/30 [Suspect]
     Active Substance: INSULIN HUMAN
     Indication: TYPE 1 DIABETES MELLITUS
     Dosage: UNK
     Route: 058
     Dates: end: 201512

REACTIONS (1)
  - Blood glucose increased [Recovered/Resolved]

NARRATIVE: CASE EVENT DATE: 201512
